FAERS Safety Report 4753772-0 (Version None)
Quarter: 2005Q3

REPORT INFORMATION
  Report Type: 
  Country: None (occurrence: None)
  Receive Date: 20050826
  Receipt Date: 20050818
  Transmission Date: 20060218
  Serious: Yes (Life-Threatening, Hospitalization)
  Sender: FDA-Public Use
  Company Number: DE-NOVOPROD-246340

PATIENT
  Age: 13 Year
  Sex: Male
  Weight: 51 kg

DRUGS (4)
  1. NORDITROPIN NORDIFLEX [Suspect]
     Indication: GROWTH HORMONE DEFICIENCY
     Dosage: 1 MG, UNK
     Route: 058
     Dates: start: 20050501, end: 20050715
  2. BACLOFEN [Concomitant]
     Dosage: 15 UNK, QD
     Route: 048
     Dates: start: 20041001
  3. GABAPENTIN [Concomitant]
     Dosage: 900 UNK, QD
     Route: 048
     Dates: start: 20041001
  4. BELOC MITE [Concomitant]
     Dosage: UNK, PRN
     Route: 048

REACTIONS (6)
  - CONVULSION [None]
  - FATIGUE [None]
  - MUSCLE SPASTICITY [None]
  - NERVOUS SYSTEM DISORDER [None]
  - PSYCHOTIC DISORDER [None]
  - SPEECH DISORDER [None]
